FAERS Safety Report 9724995 (Version 4)
Quarter: 2014Q1

REPORT INFORMATION
  Report Type: Report from Study
  Country: NL (occurrence: NL)
  Receive Date: 20131202
  Receipt Date: 20140212
  Transmission Date: 20141002
  Serious: Yes (Hospitalization)
  Sender: FDA-Public Use
  Company Number: NL-CELGENEUS-114-21660-13114048

PATIENT
  Age: 63 Year
  Sex: Male
  Weight: 60.2 kg

DRUGS (12)
  1. ABRAXANE [Suspect]
     Indication: PANCREATIC CARCINOMA
     Dosage: 125 MILLIGRAM/SQ. METER
     Route: 041
     Dates: start: 20131107, end: 20131119
  2. ABRAXANE [Suspect]
     Dosage: 125 MILLIGRAM/SQ. METER
     Route: 041
     Dates: start: 20131121
  3. GEMCITABINE [Suspect]
     Indication: PANCREATIC CARCINOMA
     Dosage: 1000 MILLIGRAM/SQ. METER
     Route: 065
     Dates: start: 20131107, end: 20131119
  4. GEMCITABINE [Suspect]
     Dosage: 1000 MILLIGRAM/SQ. METER
     Route: 065
     Dates: start: 20131121
  5. CLOPIDOGREL [Concomitant]
     Indication: THROMBOSIS
     Dosage: 75 MILLIGRAM
     Route: 048
  6. ESOMEPRAZOLE [Concomitant]
     Indication: GASTRIC DISORDER
     Dosage: 40 MILLIGRAM
     Route: 048
  7. METOPROLOL [Concomitant]
     Indication: HYPERTENSION
     Dosage: 100 MILLIGRAM
     Route: 048
  8. MAALOX [Concomitant]
     Indication: GASTRIC DISORDER
     Route: 048
  9. MAGNESIUM HYDROXIDE [Concomitant]
     Indication: CONSTIPATION
     Route: 048
  10. FENTANYL [Concomitant]
     Indication: PAIN
     Route: 065
     Dates: start: 20131119
  11. PARACETAMOL [Concomitant]
     Indication: PAIN
     Route: 048
  12. TAZOCIN [Concomitant]
     Indication: INFECTION
     Dosage: 30 MILLIGRAM
     Route: 041

REACTIONS (3)
  - Abdominal discomfort [Not Recovered/Not Resolved]
  - Vomiting [Not Recovered/Not Resolved]
  - Pancreatic carcinoma [Not Recovered/Not Resolved]
